FAERS Safety Report 7190442-6 (Version None)
Quarter: 2010Q4

REPORT INFORMATION
  Report Type: 
  Country: None (occurrence: None)
  Receive Date: 20101210
  Receipt Date: 20091119
  Transmission Date: 20110411
  Serious: Yes (Other)
  Sender: FDA-Public Use
  Company Number: RU-GDP-09409467

PATIENT
  Sex: Female
  Weight: 50 kg

DRUGS (1)
  1. BASIRON (BENZOYL PEROXIDE) 5 % [Suspect]
     Indication: ACNE
     Dosage: (TOPICAL)
     Route: 061
     Dates: start: 20090720

REACTIONS (2)
  - ERYTHEMA [None]
  - SWELLING FACE [None]
